FAERS Safety Report 22646939 (Version 1)
Quarter: 2023Q2

REPORT INFORMATION
  Report Type: Spontaneous
  Country: US (occurrence: None)
  Receive Date: 20230626
  Receipt Date: 20230626
  Transmission Date: 20230721
  Serious: Yes (Other)
  Sender: FDA-Public Use
  Company Number: None

PATIENT
  Sex: Female

DRUGS (31)
  1. DIMETHYL FUMARATE [Suspect]
     Active Substance: DIMETHYL FUMARATE
     Indication: Multiple sclerosis
     Dosage: 240 MG ORAL?? TAKE 1 CAPSULE (240 MG TOTAL) BY MOUTH 2 (TWO) TIMES A DAY?
     Route: 048
     Dates: start: 20230111
  2. ABILIFY [Concomitant]
     Active Substance: ARIPIPRAZOLE
  3. ALPRAZOLAM [Concomitant]
     Active Substance: ALPRAZOLAM
  4. ARIPIPRAZOLE [Concomitant]
     Active Substance: ARIPIPRAZOLE
  5. AUBAGIO [Concomitant]
     Active Substance: TERIFLUNOMIDE
  6. BANOPHEN [Concomitant]
     Active Substance: DIPHENHYDRAMINE HYDROCHLORIDE
  7. BENZTROPINE [Concomitant]
     Active Substance: BENZTROPINE
  8. BUSPIRONE [Concomitant]
     Active Substance: BUSPIRONE HYDROCHLORIDE
  9. CELEBREX [Concomitant]
     Active Substance: CELECOXIB
  10. CETIRIZINE [Concomitant]
     Active Substance: CETIRIZINE HYDROCHLORIDE
  11. CITALOPRAM [Concomitant]
     Active Substance: CITALOPRAM HYDROBROMIDE
  12. CLONIDINE [Concomitant]
     Active Substance: CLONIDINE
  13. VITAMIN D3 [Concomitant]
     Active Substance: CHOLECALCIFEROL
  14. DONEPEZIL [Concomitant]
     Active Substance: DONEPEZIL
  15. EMGALITY [Concomitant]
     Active Substance: GALCANEZUMAB-GNLM
  16. FLUTICASONE SPR [Concomitant]
  17. GUAIFENESIN LIQ [Concomitant]
  18. LEVOTHYROXINE [Concomitant]
     Active Substance: LEVOTHYROXINE
  19. LOSARTAN POTASSIUM [Concomitant]
     Active Substance: LOSARTAN POTASSIUM
  20. LOVASTATIN [Concomitant]
     Active Substance: LOVASTATIN
  21. NURTEC ODT [Concomitant]
     Active Substance: RIMEGEPANT SULFATE
  22. PANTOPRAZOLE [Concomitant]
     Active Substance: PANTOPRAZOLE
  23. PRAZOSIN HYDROCHLORIDE [Concomitant]
     Active Substance: PRAZOSIN HYDROCHLORIDE
  24. SILDENAFIL [Concomitant]
     Active Substance: SILDENAFIL
  25. SUMATRIPTAN [Concomitant]
     Active Substance: SUMATRIPTAN
  26. TIZANIDINE CAP [Concomitant]
  27. TOPIRAMATE [Concomitant]
     Active Substance: TOPIRAMATE
  28. TRAMADOL HCL [Concomitant]
     Active Substance: TRAMADOL HYDROCHLORIDE
  29. TRAZODONE TAB [Concomitant]
  30. UBRELVY [Concomitant]
     Active Substance: UBROGEPANT
  31. ZOLPIDEM TAB [Concomitant]

REACTIONS (1)
  - Dementia [None]
